FAERS Safety Report 8685754 (Version 3)
Quarter: 2013Q4

REPORT INFORMATION
  Report Type: Spontaneous
  Country: JP (occurrence: JP)
  Receive Date: 20120726
  Receipt Date: 20131017
  Transmission Date: 20140711
  Serious: Yes (Hospitalization)
  Sender: FDA-Public Use
  Company Number: JP-GLAXOSMITHKLINE-B0738235A

PATIENT
  Age: 76 Year
  Sex: Female
  Weight: 47 kg

DRUGS (12)
  1. VALTREX [Suspect]
     Indication: HERPES ZOSTER
     Dosage: 1000MG THREE TIMES PER DAY
     Route: 048
     Dates: start: 20110729, end: 2011
  2. DOGMATYL [Concomitant]
     Route: 065
  3. PAXIL [Concomitant]
     Route: 048
  4. TAKEPRON [Concomitant]
     Route: 065
  5. KETOBUN [Concomitant]
     Route: 048
  6. ADALAT-CR [Concomitant]
     Route: 048
  7. LIPITOR [Concomitant]
     Route: 048
  8. SELOKEN [Concomitant]
     Route: 048
  9. FOSAMAC [Concomitant]
     Route: 048
  10. ROCALTROL [Concomitant]
     Route: 065
  11. MOBIC [Concomitant]
     Route: 048
  12. ETIZOLAM [Concomitant]
     Route: 048

REACTIONS (13)
  - Renal failure acute [Recovered/Resolved]
  - Anuria [Unknown]
  - Renal impairment [Unknown]
  - Dizziness [Unknown]
  - Dizziness [Unknown]
  - Coordination abnormal [Unknown]
  - Blood urea increased [Recovering/Resolving]
  - Blood creatinine increased [Recovering/Resolving]
  - Renal disorder [Unknown]
  - Blood uric acid increased [Unknown]
  - Blood lactate dehydrogenase increased [Unknown]
  - Beta 2 microglobulin increased [Unknown]
  - Beta 2 microglobulin urine increased [Unknown]
